FAERS Safety Report 5067169-X (Version None)
Quarter: 2006Q3

REPORT INFORMATION
  Report Type: 
  Country: None (occurrence: None)
  Receive Date: 20060727
  Receipt Date: 20060612
  Transmission Date: 20061208
  Serious: Yes (Death)
  Sender: FDA-Public Use
  Company Number: 2006068464

PATIENT
  Age: 61 Year
  Sex: Male
  Weight: 93.441 kg

DRUGS (1)
  1. BEXTRA [Suspect]
     Indication: ARTHRALGIA
     Dosage: 20 MG (20 MG, 1 IN 1 D)
     Dates: start: 20030508, end: 20040531

REACTIONS (2)
  - ARTERIOSCLEROSIS [None]
  - SUDDEN CARDIAC DEATH [None]
